FAERS Safety Report 13924903 (Version 1)
Quarter: 2017Q3

REPORT INFORMATION
  Report Type: Spontaneous
  Country: US (occurrence: US)
  Receive Date: 20170831
  Receipt Date: 20170831
  Transmission Date: 20171127
  Serious: Yes (Other)
  Sender: FDA-Public Use
  Company Number: US-GLAXOSMITHKLINE-US2017GSK130847

PATIENT
  Sex: Female
  Weight: 82 kg

DRUGS (3)
  1. NICORETTE [Suspect]
     Active Substance: NICOTINE
     Indication: SMOKING CESSATION THERAPY
     Dosage: UNK
  2. NICOTINE. [Suspect]
     Active Substance: NICOTINE
     Indication: SMOKING CESSATION THERAPY
     Dosage: UNK
  3. NICORETTE [Suspect]
     Active Substance: NICOTINE
     Indication: SMOKING CESSATION THERAPY
     Dosage: UNK

REACTIONS (11)
  - Drug ineffective [Unknown]
  - Application site urticaria [Recovered/Resolved]
  - Application site erythema [Recovered/Resolved]
  - Gastric stenosis [Unknown]
  - Hypersensitivity [Unknown]
  - Vomiting [Recovered/Resolved]
  - Nausea [Recovered/Resolved]
  - Gastrooesophageal reflux disease [Unknown]
  - Dyspepsia [Recovered/Resolved]
  - Irritable bowel syndrome [Recovered/Resolved]
  - Condition aggravated [Recovered/Resolved]
